FAERS Safety Report 5401816-5 (Version None)
Quarter: 2007Q3

REPORT INFORMATION
  Report Type: 
  Country: None (occurrence: None)
  Receive Date: 20070726
  Receipt Date: 20070718
  Transmission Date: 20080115
  Serious: Yes (Other)
  Sender: FDA-Public Use
  Company Number: 217-20785-07071082

PATIENT
  Age: 57 Year
  Sex: Female

DRUGS (1)
  1. THALIDOMIDE [Suspect]
     Indication: MULTIPLE MYELOMA
     Dosage: 400 MG, DAILY, ORAL
     Route: 048
     Dates: start: 20070223

REACTIONS (4)
  - CARDIOPULMONARY FAILURE [None]
  - DYSPNOEA [None]
  - GENERALISED OEDEMA [None]
  - OEDEMA PERIPHERAL [None]
